FAERS Safety Report 6061648-4 (Version None)
Quarter: 2009Q1

REPORT INFORMATION
  Report Type: 
  Country: None (occurrence: None)
  Receive Date: 20090202
  Receipt Date: 20090129
  Transmission Date: 20090719
  Serious: Yes (Death)
  Sender: FDA-Public Use
  Company Number: A0766193A

PATIENT
  Age: 81 Year
  Sex: Female

DRUGS (3)
  1. SERETIDE [Suspect]
     Indication: ASTHMA
     Dosage: 1PUFF TWICE PER DAY
     Route: 055
     Dates: start: 20080801, end: 20081201
  2. PREDNISOLONE [Concomitant]
  3. ANCORON [Concomitant]

REACTIONS (1)
  - ASTHMATIC CRISIS [None]
